FAERS Safety Report 9699181 (Version 2)
Quarter: 2013Q4

REPORT INFORMATION
  Report Type: Spontaneous
  Country: US (occurrence: US)
  Receive Date: 20131120
  Receipt Date: 20131120
  Transmission Date: 20140711
  Serious: No
  Sender: FDA-Public Use
  Company Number: US-GILEAD-2008-0014914

PATIENT
  Sex: Male
  Weight: 108.86 kg

DRUGS (10)
  1. LETAIRIS [Suspect]
     Indication: PULMONARY ARTERIAL HYPERTENSION
     Route: 048
  2. CLONAZEPAM [Concomitant]
     Route: 048
  3. ZOLOFT [Concomitant]
     Dosage: UD
     Route: 048
  4. OXYGEN [Concomitant]
     Dosage: CONTINUOUS
     Route: 045
  5. LASIX [Concomitant]
     Dosage: PRN
     Route: 048
  6. REVATIO [Concomitant]
     Route: 048
  7. REMODULIN [Concomitant]
     Dosage: CONTINUOUS
     Route: 058
  8. METHADONE [Concomitant]
     Dosage: TID
     Route: 048
  9. ACETAMINOPHEN [Concomitant]
     Dosage: PRN
     Route: 048
  10. WARFARIN SODIUM [Concomitant]
     Route: 048

REACTIONS (1)
  - Headache [Unknown]
